FAERS Safety Report 14882330 (Version 1)
Quarter: 2018Q2

REPORT INFORMATION
  Report Type: Spontaneous
  Country: ZA (occurrence: ZA)
  Receive Date: 20180511
  Receipt Date: 20180511
  Transmission Date: 20180711
  Serious: Yes (Hospitalization)
  Sender: FDA-Public Use
  Company Number: ZA-ASTRAZENECA-2018SE60643

PATIENT
  Sex: Female

DRUGS (9)
  1. EUTHYROX [Concomitant]
     Active Substance: LEVOTHYROXINE SODIUM
     Dosage: 25.0MG UNKNOWN
  2. ULSANIC [Concomitant]
     Active Substance: SUCRALFATE
     Dosage: 1000.0MG UNKNOWN
  3. ASACOL [Concomitant]
     Active Substance: MESALAMINE
     Dosage: 400.0MG UNKNOWN
  4. TRUSTAN [Suspect]
     Active Substance: ESOMEPRAZOLE
     Indication: ULCER
     Dosage: 40.0MG UNKNOWN
     Route: 048
  5. ALTOSEC [Concomitant]
     Active Substance: OMEPRAZOLE
     Dosage: 20.0MG UNKNOWN
  6. ZANIDIP [Concomitant]
     Active Substance: LERCANIDIPINE HYDROCHLORIDE
  7. DOXAZOSIN MESILATE [Concomitant]
     Active Substance: DOXAZOSIN MESYLATE
  8. ONBREZ [Concomitant]
     Active Substance: INDACATEROL
     Dosage: 150 MCG
  9. ASPAVOR [Concomitant]
     Active Substance: ATORVASTATIN

REACTIONS (2)
  - Gastrointestinal infection [Unknown]
  - Renal failure [Unknown]
